FAERS Safety Report 13076061 (Version 1)
Quarter: 2016Q4

REPORT INFORMATION
  Report Type: Spontaneous
  Country: US (occurrence: US)
  Receive Date: 20161230
  Receipt Date: 20161230
  Transmission Date: 20170207
  Serious: Yes (Hospitalization)
  Sender: FDA-Public Use
  Company Number: US-MALLINCKRODT-T201606735

PATIENT
  Age: 56 Year
  Sex: Male

DRUGS (4)
  1. GABLOFEN [Suspect]
     Active Substance: BACLOFEN
     Indication: MUSCLE SPASTICITY
     Dosage: 96 ?G, QD
     Route: 037
  2. BACLOFEN. [Concomitant]
     Active Substance: BACLOFEN
     Dosage: UNK
     Route: 048
  3. GABLOFEN [Suspect]
     Active Substance: BACLOFEN
     Dosage: 400 ?G, QD
     Route: 037
     Dates: start: 20161214
  4. GABLOFEN [Suspect]
     Active Substance: BACLOFEN
     Dosage: 700 ?G, QD
     Route: 037
     Dates: end: 20161214

REACTIONS (1)
  - Implant site inflammation [Unknown]

NARRATIVE: CASE EVENT DATE: 20161203
